FAERS Safety Report 5132366-1 (Version None)
Quarter: 2006Q4

REPORT INFORMATION
  Report Type: 
  Country: None (occurrence: None)
  Receive Date: 20061023
  Receipt Date: 20060927
  Transmission Date: 20070319
  Serious: Yes (Other)
  Sender: FDA-Public Use
  Company Number: US-BRISTOL-MYERS SQUIBB COMPANY-13523055

PATIENT
  Age: 78 Year
  Sex: Male
  Weight: 75 kg

DRUGS (16)
  1. BLANOXAN [Suspect]
     Indication: HODGKIN'S DISEASE
     Route: 040
     Dates: start: 20060926, end: 20060926
  2. ADRIAMYCIN PFS [Concomitant]
  3. DACARBAZINE [Concomitant]
  4. VELBAN [Concomitant]
  5. ALOXI [Concomitant]
     Indication: PREMEDICATION
     Route: 042
     Dates: start: 20060926
  6. DECADRON [Concomitant]
     Indication: PREMEDICATION
     Route: 042
     Dates: start: 20060926
  7. LISINOPRIL [Concomitant]
  8. METFORMIN HYDROCHLORIDE [Concomitant]
  9. FLUVASTATIN SODIUM [Concomitant]
  10. GLYBURIDE [Concomitant]
  11. LORATADINE [Concomitant]
  12. FORADIL [Concomitant]
     Route: 055
  13. FLUNISOLIDE [Concomitant]
     Route: 045
  14. ASMANEX TWISTHALER [Concomitant]
  15. CILOSTAZOL [Concomitant]
  16. TYLENOL [Concomitant]

REACTIONS (7)
  - BODY TEMPERATURE INCREASED [None]
  - BRONCHOSPASM [None]
  - CHILLS [None]
  - DYSPNOEA [None]
  - HYPERTENSION [None]
  - OXYGEN SATURATION DECREASED [None]
  - WHEEZING [None]
